FAERS Safety Report 14991599 (Version 1)
Quarter: 2018Q2

REPORT INFORMATION
  Report Type: Spontaneous
  Country: JP (occurrence: JP)
  Receive Date: 20180608
  Receipt Date: 20180608
  Transmission Date: 20180711
  Serious: Yes (Hospitalization)
  Sender: FDA-Public Use
  Company Number: JP-ANIPHARMA-2018-JP-000090

PATIENT
  Age: 77 Year
  Sex: Female

DRUGS (13)
  1. FRANDOL [Concomitant]
     Active Substance: ISOSORBIDE DINITRATE
     Dosage: 40 MG QD
     Route: 061
     Dates: start: 20110316
  2. LIPITOR [Concomitant]
     Active Substance: ATORVASTATIN CALCIUM
     Dosage: 20 MG QD
     Route: 048
     Dates: start: 20130807
  3. CANDESARTAN CILEXETIL. [Suspect]
     Active Substance: CANDESARTAN CILEXETIL
     Dosage: 8 MG QD
     Route: 048
     Dates: start: 20180402
  4. ZETIA [Concomitant]
     Active Substance: EZETIMIBE
     Dosage: 10 MG QD
     Route: 048
     Dates: start: 20110316
  5. ARTIST [Concomitant]
     Active Substance: CARVEDILOL
     Dosage: 15 MG BID
     Route: 048
     Dates: start: 20110316
  6. BAYASPIRIN [Concomitant]
     Active Substance: ASPIRIN
     Dosage: 100 MG QD
     Route: 048
     Dates: start: 20110316
  7. TRESIBA [Concomitant]
     Active Substance: INSULIN DEGLUDEC
     Dosage: 42 IU QD
     Route: 058
     Dates: start: 20130925
  8. VICTOZA [Concomitant]
     Active Substance: LIRAGLUTIDE
     Dosage: .9 MG QD
     Route: 058
     Dates: start: 20180411
  9. FEBURIC [Concomitant]
     Active Substance: FEBUXOSTAT
     Dosage: 20 MG QD ROUTE
     Route: 048
     Dates: start: 20120815
  10. DIGOSIN [Concomitant]
     Active Substance: DIGOXIN
     Dosage: .063 MG QD
     Route: 048
     Dates: start: 20120627
  11. LANSOPRAZOLE. [Concomitant]
     Active Substance: LANSOPRAZOLE
     Dosage: 15 MG QD
     Route: 048
     Dates: start: 20110316
  12. SIGMART [Concomitant]
     Active Substance: NICORANDIL
     Dosage: 5 MG TID
     Route: 048
     Dates: start: 20110318
  13. WARFARIN [Concomitant]
     Active Substance: WARFARIN
     Dosage: 1.5 MG QD
     Route: 048
     Dates: start: 20110316

REACTIONS (9)
  - Dyspnoea [Recovering/Resolving]
  - Malaise [Recovering/Resolving]
  - Atrial fibrillation [Recovering/Resolving]
  - Depressed level of consciousness [Recovering/Resolving]
  - Pyrexia [Recovered/Resolved]
  - Chest pain [Recovering/Resolving]
  - Asthma [Recovering/Resolving]
  - Influenza [Recovering/Resolving]
  - Cardiac failure [Recovering/Resolving]

NARRATIVE: CASE EVENT DATE: 20180519
